FAERS Safety Report 15368183 (Version 1)
Quarter: 2018Q3

REPORT INFORMATION
  Report Type: Spontaneous
  Country: US (occurrence: US)
  Receive Date: 20180910
  Receipt Date: 20180910
  Transmission Date: 20181010
  Serious: Yes (Other)
  Sender: FDA-Public Use
  Company Number: US-SHIRE-US201834407

PATIENT
  Age: 58 Year
  Sex: Female
  Weight: 59 kg

DRUGS (1)
  1. GATTEX [Suspect]
     Active Substance: TEDUGLUTIDE\WATER
     Indication: PRODUCT USED FOR UNKNOWN INDICATION
     Dosage: 0.29 UNK, 1X/DAY:QD
     Route: 065
     Dates: start: 20180523, end: 20180904

REACTIONS (2)
  - Stoma site haemorrhage [Unknown]
  - Stoma obstruction [Unknown]

NARRATIVE: CASE EVENT DATE: 20180904
